FAERS Safety Report 8201943-3 (Version None)
Quarter: 2012Q1

REPORT INFORMATION
  Report Type: 
  Country: None (occurrence: None)
  Receive Date: 20120312
  Receipt Date: 20120307
  Transmission Date: 20120608
  Serious: Yes (Other)
  Sender: FDA-Public Use
  Company Number: NL-PFIZER INC-2012061677

PATIENT
  Age: 36 Year
  Sex: Female

DRUGS (6)
  1. SULFASALAZINE [Suspect]
     Indication: RHEUMATOID ARTHRITIS
     Dosage: 500 MG, 2X/DAY
     Dates: start: 20090926, end: 20091012
  2. HUMIRA [Concomitant]
     Dosage: 80 MG, MONTHLY
     Dates: start: 20070401
  3. PREDNISOLONE [Concomitant]
     Dosage: 5 MG, 1X/DAY
     Dates: start: 20080423
  4. COLECALCIFEROL [Concomitant]
     Dosage: 1 DF, 1X/DAY
     Dates: start: 20080423, end: 20091012
  5. PANTOPRAZOLE [Concomitant]
     Dosage: 20 MG, 1X/DAY
     Dates: start: 20080423
  6. PLAQUENIL [Concomitant]
     Dosage: 200 MG, 1X/DAY
     Dates: start: 20081218, end: 20100301

REACTIONS (1)
  - AFFECTIVE DISORDER [None]
